FAERS Safety Report 21798003 (Version 1)
Quarter: 2022Q4

REPORT INFORMATION
  Report Type: Spontaneous
  Country: US (occurrence: US)
  Receive Date: 20221230
  Receipt Date: 20221230
  Transmission Date: 20230113
  Serious: No
  Sender: FDA-Public Use
  Company Number: US-SA-SAC20221229000846

PATIENT
  Sex: Female

DRUGS (16)
  1. DUPIXENT [Suspect]
     Active Substance: DUPILUMAB
     Indication: Asthma
     Dosage: 300 MG, Q15D
     Route: 058
  2. ALENDRONATE [Concomitant]
     Active Substance: ALENDRONATE SODIUM
  3. ASPIRIN [Concomitant]
     Active Substance: ASPIRIN
  4. BIOTIN [Concomitant]
     Active Substance: BIOTIN
     Dosage: 1000MCG
  5. CALCIUM [Concomitant]
     Active Substance: CALCIUM
  6. DEXILANT [Concomitant]
     Active Substance: DEXLANSOPRAZOLE
  7. ESCITALOPRAM [Concomitant]
     Active Substance: ESCITALOPRAM OXALATE
     Dosage: 20MG
  8. PROBIOTICS NOS [Concomitant]
     Active Substance: PROBIOTICS NOS
  9. GABAPENTIN [Concomitant]
     Active Substance: GABAPENTIN
  10. IBUPROFEN [Concomitant]
     Active Substance: IBUPROFEN
  11. MONTELUKAST [Concomitant]
     Active Substance: MONTELUKAST SODIUM
     Dosage: 10MG
  12. VALSARTAN [Concomitant]
     Active Substance: VALSARTAN
     Dosage: 320MG
  13. VITAMIN D3 [Concomitant]
     Active Substance: CHOLECALCIFEROL
  14. LEVOTHYROXINE [Concomitant]
     Active Substance: LEVOTHYROXINE
  15. LEVOCETIRIZINE [Concomitant]
     Active Substance: LEVOCETIRIZINE
  16. METFORMIN HYDROCHLORIDE [Concomitant]
     Active Substance: METFORMIN HYDROCHLORIDE

REACTIONS (2)
  - Cough [Unknown]
  - Nasopharyngitis [Unknown]
